FAERS Safety Report 6184746-3 (Version None)
Quarter: 2009Q2

REPORT INFORMATION
  Report Type: 
  Country: None (occurrence: None)
  Receive Date: 20090508
  Receipt Date: 20090428
  Transmission Date: 20091009
  Serious: Yes (Other)
  Sender: FDA-Public Use
  Company Number: PHEH2009US03600

PATIENT
  Sex: Female

DRUGS (1)
  1. RECLAST [Suspect]

REACTIONS (14)
  - ARTHRALGIA [None]
  - CEREBROVASCULAR ACCIDENT [None]
  - CLUSTER HEADACHE [None]
  - FATIGUE [None]
  - INFLUENZA LIKE ILLNESS [None]
  - INSOMNIA [None]
  - JOINT SWELLING [None]
  - MUSCLE SPASMS [None]
  - MUSCULOSKELETAL DISCOMFORT [None]
  - OEDEMA PERIPHERAL [None]
  - PAIN [None]
  - PAIN IN EXTREMITY [None]
  - PYREXIA [None]
  - VOMITING [None]
